FAERS Safety Report 4747020-5 (Version None)
Quarter: 2005Q3

REPORT INFORMATION
  Report Type: 
  Country: None (occurrence: None)
  Receive Date: 20050817
  Receipt Date: 20050811
  Transmission Date: 20060218
  Serious: Yes (Other)
  Sender: FDA-Public Use
  Company Number: PHBS2005BR11887

PATIENT
  Age: 87 Year
  Sex: Male

DRUGS (5)
  1. EXELON [Suspect]
     Indication: DEMENTIA ALZHEIMER'S TYPE
     Dosage: 3 MG, Q12H
     Route: 048
     Dates: end: 20050812
  2. SEROQUEL [Suspect]
     Dates: end: 20050803
  3. LEVODOPA [Concomitant]
     Dates: end: 20050812
  4. CATAFLAM [Suspect]
     Dates: start: 20050801, end: 20050802
  5. CALCORT [Concomitant]

REACTIONS (7)
  - ABNORMAL BEHAVIOUR [None]
  - AGITATION [None]
  - CONDITION AGGRAVATED [None]
  - DRUG INTERACTION [None]
  - ERYTHEMA [None]
  - PHARYNGOLARYNGEAL PAIN [None]
  - SKIN REACTION [None]
